FAERS Safety Report 8312947-4 (Version None)
Quarter: 2012Q2

REPORT INFORMATION
  Report Type: 
  Country: None (occurrence: None)
  Receive Date: 20120424
  Receipt Date: 20120416
  Transmission Date: 20120825
  Serious: Yes (Other)
  Sender: FDA-Public Use
  Company Number: CIP-2012-00109

PATIENT
  Age: 25 Year
  Sex: Female

DRUGS (9)
  1. HALOPERIDOL [Concomitant]
  2. FOLIC ACID [Concomitant]
  3. CEFTRIAXONE [Concomitant]
  4. FERROUS SULFATE TAB [Concomitant]
  5. RISPERIDONE [Suspect]
     Indication: ACUTE PSYCHOSIS
     Dosage: 2 MG (2 MG, 1 IN 1 D),
  6. LORAZEPAM [Concomitant]
  7. AMOXICILLIN [Concomitant]
  8. AMPICILLIN [Concomitant]
  9. MULTI-VITAMINS [Concomitant]

REACTIONS (10)
  - MENTAL STATUS CHANGES [None]
  - MUSCLE RIGIDITY [None]
  - HYPERTHERMIA [None]
  - ALANINE AMINOTRANSFERASE INCREASED [None]
  - NEUROLEPTIC MALIGNANT SYNDROME [None]
  - AUTONOMIC NERVOUS SYSTEM IMBALANCE [None]
  - MAJOR DEPRESSION [None]
  - MATERNAL EXPOSURE DURING PREGNANCY [None]
  - ASPARTATE AMINOTRANSFERASE INCREASED [None]
  - PSYCHOTIC DISORDER [None]
